FAERS Safety Report 8229303 (Version 2)
Quarter: 2013Q1

REPORT INFORMATION
  Report Type: Spontaneous
  Country: US (occurrence: None)
  Receive Date: 20110207
  Receipt Date: 20130222
  Transmission Date: 20140127
  Serious: Yes (Other)
  Sender: FDA-Public Use
  Company Number: ACO_21544_2011

PATIENT
  Age: 62 Year
  Sex: Female
  Weight: 81.6 kg

DRUGS (6)
  1. AMPYRA [Suspect]
     Indication: GAIT DISTURBANCE
     Route: 048
     Dates: start: 201011, end: 201011
  2. BACLOFEN (BACLOFEN) [Concomitant]
  3. HYDROCHLOROTHIAZIDE (HYDROCHLOROTHIAZIDE) [Concomitant]
  4. AMANTADINE (AMANTADINE) [Concomitant]
  5. REBIF [Concomitant]
  6. ANTIBIOTICS [Concomitant]

REACTIONS (1)
  - Loss of consciousness [None]
